FAERS Safety Report 6590829-6 (Version None)
Quarter: 2010Q1

REPORT INFORMATION
  Report Type: 
  Country: None (occurrence: None)
  Receive Date: 20100219
  Receipt Date: 20100211
  Transmission Date: 20100710
  Serious: Yes (Hospitalization)
  Sender: FDA-Public Use
  Company Number: CH-PFIZER INC-2010018632

PATIENT
  Age: 88 Year
  Sex: Female

DRUGS (15)
  1. SORTIS [Suspect]
     Dosage: 20 MG, 1X/DAY
     Dates: start: 20100110, end: 20100117
  2. LIQUAEMIN INJ [Suspect]
     Dosage: UNK
     Dates: start: 20100108
  3. TIENAM [Concomitant]
     Indication: BRONCHOPNEUMONIA
     Dosage: 500 MG, 3X/DAY
     Route: 042
     Dates: start: 20100118, end: 20100121
  4. SINTROM [Concomitant]
     Dosage: 2 MG, UNK
     Dates: start: 20100119
  5. METOPROLOL [Concomitant]
     Dosage: UNK
  6. ZOLPIDEM [Concomitant]
     Dosage: 5 MG, 1X/DAY
  7. PARACETAMOL [Concomitant]
     Dosage: 1 G, 1X/DAY
     Dates: start: 20100116, end: 20100116
  8. PRIMPERAN TAB [Concomitant]
     Dosage: 10 MG, 1X/DAY
     Dates: start: 20100120, end: 20100120
  9. ASPIRIN [Concomitant]
     Dosage: 100 MG, 1X/DAY
     Route: 048
  10. ATENOLOL [Concomitant]
     Dosage: 50 MG, 1X/DAY
     Route: 048
  11. DIGOXIN [Concomitant]
     Dosage: 0.125 MG, 1X/DAY
     Route: 048
  12. TORASEMIDE [Concomitant]
     Dosage: 10 MG, WEEKLY
  13. ENALAPRIL [Concomitant]
     Dosage: 10 MG, 1X/DAY
  14. ALDACTONE [Concomitant]
     Dosage: 25 MG, 1X/DAY
  15. METFORMIN [Concomitant]
     Dosage: 500 MG, 2X/DAY
     Dates: end: 20100118

REACTIONS (1)
  - LIVER INJURY [None]
